FAERS Safety Report 9846198 (Version 2)
Quarter: 2015Q1

REPORT INFORMATION
  Report Type: Report from Study
  Country: US (occurrence: US)
  Receive Date: 20140127
  Receipt Date: 20150101
  Transmission Date: 20150721
  Serious: Yes (Death, Hospitalization)
  Sender: FDA-Public Use
  Company Number: US-ROCHE-1334686

PATIENT
  Age: 67 Year
  Sex: Female
  Weight: 48.58 kg

DRUGS (38)
  1. DEXAMETHASON [Concomitant]
     Active Substance: DEXAMETHASONE
     Dosage: 1 TABLET DAILY 1 WEEK BEFORE CHEMOTHERAPY AND 1 TABLET DAILY FOR 3 WEEKS AFTER CHEMO
     Route: 048
     Dates: start: 20110314
  2. DEXAMETHASON [Concomitant]
     Active Substance: DEXAMETHASONE
     Dosage: DAY BEFORE CHEMO, CONT. 1 DAY AFTER CHEMO (3 DAYS)
     Route: 048
     Dates: start: 20110314
  3. FOLIC ACID. [Concomitant]
     Active Substance: FOLIC ACID
     Dosage: THREE WEEKS AFTER CHEMOTHERAPY
     Route: 048
  4. MEGESTROL ACETATE. [Concomitant]
     Active Substance: MEGESTROL ACETATE
     Dosage: 10 ML TWICE DAILY
     Route: 048
     Dates: start: 20120228
  5. ACYCLOVIR. [Concomitant]
     Active Substance: ACYCLOVIR
     Dosage: 5 TIMES DAILY
     Route: 048
  6. FERROUS SULFATE [Concomitant]
     Active Substance: FERROUS SULFATE\FERROUS SULFATE, DRIED
  7. AVASTIN [Suspect]
     Active Substance: BEVACIZUMAB
     Route: 042
     Dates: start: 20110511
  8. GRANISETRON [Suspect]
     Active Substance: GRANISETRON
     Indication: PRODUCT USED FOR UNKNOWN INDICATION
     Dosage: STARTED ON 14/MAR/2011
     Route: 065
  9. VERAPAMIL [Concomitant]
     Active Substance: VERAPAMIL HYDROCHLORIDE
     Dosage: USE AS DIRECETED
     Route: 065
     Dates: start: 20111214
  10. ACYCLOVIR. [Concomitant]
     Active Substance: ACYCLOVIR
     Dosage: 5 TIMES DAILY
     Route: 048
  11. FOSAMAX [Concomitant]
     Active Substance: ALENDRONATE SODIUM
  12. SEREVENT DISKUS [Concomitant]
     Active Substance: SALMETEROL XINAFOATE
     Route: 045
     Dates: start: 20110307
  13. SINEMET [Concomitant]
     Active Substance: CARBIDOPA\LEVODOPA
     Dosage: DOSEE: 25-250 MG
     Route: 048
     Dates: start: 20101229
  14. ALOXI [Concomitant]
     Active Substance: PALONOSETRON HYDROCHLORIDE
     Route: 040
  15. VITAMIN C [Concomitant]
     Active Substance: ASCORBIC ACID
     Route: 048
     Dates: start: 20101229
  16. ZEGERID OTC [Concomitant]
     Active Substance: OMEPRAZOLE\SODIUM BICARBONATE
     Route: 048
     Dates: start: 20120228
  17. SEREVENT [Concomitant]
     Active Substance: SALMETEROL XINAFOATE
     Route: 065
     Dates: start: 20110307
  18. NACL .9% [Concomitant]
     Route: 065
  19. AVASTIN [Suspect]
     Active Substance: BEVACIZUMAB
     Route: 042
     Dates: start: 20110314
  20. SPIRIVA [Concomitant]
     Active Substance: TIOTROPIUM BROMIDE MONOHYDRATE
     Route: 045
     Dates: start: 20101229
  21. ZOCOR [Concomitant]
     Active Substance: SIMVASTATIN
     Dosage: AS NEEDED
     Route: 048
     Dates: start: 20101229
  22. BENADRYL [Concomitant]
     Active Substance: DIPHENHYDRAMINE HYDROCHLORIDE
     Route: 065
     Dates: start: 20100726
  23. AVASTIN [Suspect]
     Active Substance: BEVACIZUMAB
     Dosage: LAST DOSE OF BEVACIZUMAB.
     Route: 042
     Dates: start: 20120328
  24. DICLOFENAC SODIUM. [Concomitant]
     Active Substance: DICLOFENAC SODIUM
     Route: 048
     Dates: start: 20101229
  25. FOLIC ACID. [Concomitant]
     Active Substance: FOLIC ACID
     Dosage: ONE WEEK BEFORE CHEMOTHERAPY
     Route: 048
     Dates: start: 20110307
  26. CARBOPLATIN. [Concomitant]
     Active Substance: CARBOPLATIN
     Dosage: AUC 6
     Route: 065
  27. PEPCID [Concomitant]
     Active Substance: FAMOTIDINE
     Route: 042
  28. AVASTIN [Suspect]
     Active Substance: BEVACIZUMAB
     Indication: ADENOCARCINOMA
     Route: 042
     Dates: start: 20100726
  29. AVASTIN [Suspect]
     Active Substance: BEVACIZUMAB
     Indication: NON-SMALL CELL LUNG CANCER
     Route: 042
     Dates: start: 20101022
  30. FERROUS SULFATE [Concomitant]
     Active Substance: FERROUS SULFATE\FERROUS SULFATE, DRIED
     Route: 048
     Dates: start: 20120102
  31. ALIMTA [Concomitant]
     Active Substance: PEMETREXED DISODIUM
     Route: 065
  32. AVASTIN [Suspect]
     Active Substance: BEVACIZUMAB
     Indication: LUNG NEOPLASM MALIGNANT
     Route: 042
     Dates: start: 20101028
  33. AVASTIN [Suspect]
     Active Substance: BEVACIZUMAB
     Route: 042
     Dates: start: 20110404
  34. FLUCONAZOLE. [Concomitant]
     Active Substance: FLUCONAZOLE
     Route: 048
  35. NADOLOL. [Concomitant]
     Active Substance: NADOLOL
     Route: 048
  36. TAXOTERE [Concomitant]
     Active Substance: DOCETAXEL
     Route: 065
     Dates: start: 20100726
  37. AVASTIN [Suspect]
     Active Substance: BEVACIZUMAB
     Route: 042
     Dates: start: 20110425
  38. XANAX [Concomitant]
     Active Substance: ALPRAZOLAM
     Dosage: AS NEEDED
     Route: 048
     Dates: start: 20120228

REACTIONS (32)
  - Somnolence [Unknown]
  - Fatigue [Unknown]
  - Jaundice [Unknown]
  - Malnutrition [Unknown]
  - Oral candidiasis [Unknown]
  - Dyspnoea [Unknown]
  - Arthritis [Unknown]
  - Mucosal inflammation [Unknown]
  - Osteoporosis [Unknown]
  - Mental status changes [Unknown]
  - Stomatitis [Unknown]
  - Palpitations [Unknown]
  - Underweight [Unknown]
  - Fatigue [Unknown]
  - Feeling abnormal [Unknown]
  - Oesophageal candidiasis [Unknown]
  - Dehydration [Unknown]
  - Decreased appetite [Unknown]
  - Cough [Unknown]
  - Dry skin [Unknown]
  - Restless legs syndrome [Unknown]
  - Lung cancer metastatic [Fatal]
  - Asthenia [Unknown]
  - Rib fracture [Unknown]
  - Osteopenia [Unknown]
  - Breath sounds abnormal [Unknown]
  - Weight decreased [Unknown]
  - Diarrhoea [Unknown]
  - Tachycardia [Unknown]
  - Dizziness [Unknown]
  - Thrombocytosis [Unknown]
  - Hypotension [Unknown]

NARRATIVE: CASE EVENT DATE: 20110531
